FAERS Safety Report 5815378-1 (Version None)
Quarter: 2008Q3

REPORT INFORMATION
  Report Type: 
  Country: None (occurrence: None)
  Receive Date: 20080715
  Receipt Date: 20080701
  Transmission Date: 20090109
  Serious: Yes (Hospitalization)
  Sender: FDA-Public Use
  Company Number: 270001M08FRA

PATIENT
  Age: 44 Year
  Sex: Female

DRUGS (2)
  1. METRODIN [Suspect]
     Indication: INFERTILITY
     Dates: start: 19930101
  2. ESTRO PROGESTATIVE PILL (ORAL CONTRACEPTIVE NOS) [Concomitant]

REACTIONS (4)
  - BREAST CANCER [None]
  - DRUG EXPOSURE DURING PREGNANCY [None]
  - FIBROADENOMA OF BREAST [None]
  - PREGNANCY [None]
